FAERS Safety Report 7197056-2 (Version None)
Quarter: 2010Q4

REPORT INFORMATION
  Report Type: 
  Country: None (occurrence: None)
  Receive Date: 20101224
  Receipt Date: 20101215
  Transmission Date: 20110411
  Serious: Yes (Hospitalization)
  Sender: FDA-Public Use
  Company Number: GB-AMGEN-GBRCT2010009394

PATIENT

DRUGS (8)
  1. PANITUMUMAB [Suspect]
     Indication: GASTROOESOPHAGEAL CANCER
     Dosage: UNK
     Dates: start: 20101012, end: 20101025
  2. PANITUMUMAB [Suspect]
     Dosage: UNK
     Dates: start: 20101128
  3. EPIRUBICIN [Concomitant]
     Dosage: UNK
     Dates: start: 20101012, end: 20101025
  4. EPIRUBICIN [Concomitant]
     Dosage: 37.5 MG/M2, UNK
     Dates: start: 20101126
  5. OXALIPLATIN [Concomitant]
     Dosage: UNK
     Dates: start: 20101012, end: 20101025
  6. OXALIPLATIN [Concomitant]
     Dosage: 80 MG/M2, UNK
     Dates: start: 20101126
  7. CAPECITABINE [Concomitant]
     Dosage: UNK
     Dates: start: 20101012, end: 20101025
  8. CAPECITABINE [Concomitant]
     Dosage: 1000 MG/M2, UNK
     Dates: start: 20101126

REACTIONS (1)
  - FEBRILE NEUTROPENIA [None]
